FAERS Safety Report 7930197-8 (Version None)
Quarter: 2011Q4

REPORT INFORMATION
  Report Type: 
  Country: None (occurrence: None)
  Receive Date: 20111121
  Receipt Date: 20111111
  Transmission Date: 20120403
  Serious: Yes (Hospitalization)
  Sender: FDA-Public Use
  Company Number: GB-ASTRAZENECA-2011SE68331

PATIENT
  Age: 26720 Day
  Sex: Male

DRUGS (11)
  1. OMEPRAZOLE [Concomitant]
     Indication: PROPHYLAXIS AGAINST GASTROINTESTINAL ULCER
     Route: 048
  2. DIAZEPAM [Concomitant]
     Indication: ANXIETY
     Route: 048
  3. VANDETANIB [Suspect]
     Indication: THYROID CANCER
     Route: 048
     Dates: start: 20110722
  4. PLAVIX FC [Concomitant]
     Indication: THROMBOSIS PROPHYLAXIS
     Route: 048
  5. DOTHIEPIN HYDROCHLORIDE [Concomitant]
     Indication: ANTIDEPRESSANT THERAPY
     Route: 048
  6. LACTULOSE [Concomitant]
     Indication: CONSTIPATION
  7. DOTHIEPIN HYDROCHLORIDE [Concomitant]
     Indication: SLEEP DISORDER
     Route: 048
  8. SIMVASTATIN [Concomitant]
     Indication: BLOOD CHOLESTEROL INCREASED
     Route: 048
  9. BISOPRILOL [Concomitant]
     Indication: HYPERTENSION
     Route: 048
  10. LEVOTHYROXINE SODIUM [Concomitant]
     Indication: THYROXINE THERAPY
     Route: 048
  11. MUCODYNE [Concomitant]
     Indication: PRODUCTIVE COUGH
     Route: 048
     Dates: start: 20110727

REACTIONS (1)
  - SKIN REACTION [None]
